FAERS Safety Report 8267098-4 (Version None)
Quarter: 2012Q2

REPORT INFORMATION
  Report Type: 
  Country: None (occurrence: None)
  Receive Date: 20120409
  Receipt Date: 20120405
  Transmission Date: 20120825
  Serious: Yes (Other)
  Sender: FDA-Public Use
  Company Number: GR-ABBOTT-12P-066-0919978-00

PATIENT
  Age: 60 Year
  Sex: Male

DRUGS (3)
  1. HUMIRA [Suspect]
     Indication: PSORIASIS
     Dates: start: 20100914, end: 20110412
  2. METHOTREXATE [Concomitant]
     Indication: PSORIASIS
     Dosage: 15 MG PER WEEK
     Dates: start: 20101014
  3. HUMIRA [Suspect]
     Dates: start: 20110831

REACTIONS (1)
  - RHABDOMYOLYSIS [None]
